FAERS Safety Report 4776976-X (Version None)
Quarter: 2005Q3

REPORT INFORMATION
  Report Type: 
  Country: None (occurrence: None)
  Receive Date: 20050915
  Receipt Date: 20050906
  Transmission Date: 20060218
  Serious: Yes (Hospitalization)
  Sender: FDA-Public Use
  Company Number: 20050032USST

PATIENT
  Age: 33 Year
  Sex: Male

DRUGS (2)
  1. TEMODAL [Suspect]
     Indication: MALIGNANT OLIGODENDROGLIOMA
     Dosage: ORAL
     Route: 048
     Dates: end: 20050601
  2. NATULAN (PROCARBAZINE HYDROCHLORIDE) CAPSULES [Suspect]
     Indication: MALIGNANT OLIGODENDROGLIOMA
     Dates: start: 20050801

REACTIONS (3)
  - BRONCHIOLITIS [None]
  - RESPIRATORY FAILURE [None]
  - THERAPY NON-RESPONDER [None]
